FAERS Safety Report 25301287 (Version 8)
Quarter: 2025Q2

REPORT INFORMATION
  Report Type: Spontaneous
  Country: FR (occurrence: FR)
  Receive Date: 20250512
  Receipt Date: 20250606
  Transmission Date: 20250717
  Serious: Yes (Hospitalization, Disabling)
  Sender: PFIZER
  Company Number: FR-PFIZER INC-202500095337

PATIENT
  Age: 39 Year
  Sex: Female
  Weight: 55 kg

DRUGS (1)
  1. CLINDAMYCIN PHOSPHATE [Suspect]
     Active Substance: CLINDAMYCIN PHOSPHATE
     Indication: Acne
     Dosage: 10 MG, 1X/DAY
     Route: 003
     Dates: start: 20220101, end: 202410

REACTIONS (17)
  - Electric shock sensation [Recovered/Resolved with Sequelae]
  - Vertigo [Recovering/Resolving]
  - Skin plaque [Recovering/Resolving]
  - Dyskinesia [Unknown]
  - Brain oedema [Unknown]
  - Headache [Recovering/Resolving]
  - Swelling face [Recovering/Resolving]
  - Hyperhidrosis [Recovered/Resolved with Sequelae]
  - Alopecia [Unknown]
  - Infection [Recovering/Resolving]
  - Musculoskeletal stiffness [Unknown]
  - Skin disorder [Unknown]
  - Scab [Recovered/Resolved with Sequelae]
  - Dizziness [Unknown]
  - Nausea [Unknown]
  - Fatigue [Unknown]
  - Off label use [Unknown]

NARRATIVE: CASE EVENT DATE: 20220101
